FAERS Safety Report 18916966 (Version 2)
Quarter: 2021Q1

REPORT INFORMATION
  Report Type: Spontaneous
  Country: US (occurrence: US)
  Receive Date: 20210219
  Receipt Date: 20210302
  Transmission Date: 20210420
  Serious: Yes (Other)
  Sender: FDA-Public Use
  Company Number: US-GW PHARMA-202102USGW00505

PATIENT

DRUGS (2)
  1. EPIDIOLEX [Suspect]
     Active Substance: CANNABIDIOL
     Indication: COGNITIVE DISORDER
     Dosage: 10 MILLIGRAM/KILOGRAM, QD
     Route: 048
     Dates: start: 201912
  2. EPIDIOLEX [Suspect]
     Active Substance: CANNABIDIOL
     Indication: STURGE-WEBER SYNDROME
     Dosage: UNKNOWN DOSE
     Route: 048
     Dates: start: 201911, end: 201912

REACTIONS (1)
  - Serous retinal detachment [Unknown]

NARRATIVE: CASE EVENT DATE: 202102
